FAERS Safety Report 12646769 (Version 1)
Quarter: 2016Q3

REPORT INFORMATION
  Report Type: Spontaneous
  Country: IT (occurrence: IT)
  Receive Date: 20160812
  Receipt Date: 20160812
  Transmission Date: 20161109
  Serious: Yes (Other)
  Sender: FDA-Public Use
  Company Number: IT-ROCHE-1810962

PATIENT
  Age: 63 Year
  Sex: Female

DRUGS (3)
  1. NEBILOX [Concomitant]
     Active Substance: NEBIVOLOL HYDROCHLORIDE
     Indication: HYPERTENSION
  2. TRASTUZUMAB [Suspect]
     Active Substance: TRASTUZUMAB
     Indication: BREAST CANCER
     Dosage: 14/DEC/2006, LAST ADMINISTRATION.
     Route: 065
     Dates: start: 20051213
  3. ANASTROZOLE. [Suspect]
     Active Substance: ANASTROZOLE
     Indication: BREAST CANCER
     Dosage: PERIOD: 3 YEARS. IN 2008, LAST ADMINISTRATION.
     Route: 048
     Dates: start: 20051213, end: 2008

REACTIONS (1)
  - Metastases to lymph nodes [Unknown]
